FAERS Safety Report 4439908-X (Version None)
Quarter: 2004Q3

REPORT INFORMATION
  Report Type: 
  Country: None (occurrence: None)
  Receive Date: 20040902
  Receipt Date: 20040827
  Transmission Date: 20050211
  Serious: Yes (Death)
  Sender: FDA-Public Use
  Company Number: US-MERCK-0408USA02208

PATIENT
  Sex: Male

DRUGS (2)
  1. LASIX [Suspect]
     Route: 065
  2. VIOXX [Suspect]
     Route: 048

REACTIONS (1)
  - DEATH [None]
